FAERS Safety Report 13668762 (Version 1)
Quarter: 2017Q2

REPORT INFORMATION
  Report Type: Spontaneous
  Country: US (occurrence: US)
  Receive Date: 20170620
  Receipt Date: 20170620
  Transmission Date: 20170830
  Serious: No
  Sender: FDA-Public Use
  Company Number: None

PATIENT
  Age: 84 Year
  Sex: Female
  Weight: 74.46 kg

DRUGS (15)
  1. ALLOPURINOL. [Concomitant]
     Active Substance: ALLOPURINOL
  2. COZAAR [Concomitant]
     Active Substance: LOSARTAN POTASSIUM
  3. METOPRLOL [Concomitant]
  4. OMEPRAZOLO [Concomitant]
     Active Substance: OMEPRAZOLE
  5. VITAMIN B COMPLEX [Concomitant]
     Active Substance: CYANOCOBALAMIN\DEXPANTHENOL\NIACINAMIDE\PYRIDOXINE HYDROCHLORIDE\RIBOFLAVIN 5^-PHOSPHATE SODIUM\THIAMINE HYDROCHLORIDE\VITAMIN B COMPLEX
  6. CPAP [Concomitant]
     Active Substance: DEVICE
  7. ATORVASTATIN [Concomitant]
     Active Substance: ATORVASTATIN
  8. FUROSEMIDE. [Concomitant]
     Active Substance: FUROSEMIDE
  9. METFORMIN [Concomitant]
     Active Substance: METFORMIN HYDROCHLORIDE
  10. CLOPIDOGREL [Concomitant]
     Active Substance: CLOPIDOGREL BISULFATE
  11. VITAMIN D3 [Concomitant]
     Active Substance: CHOLECALCIFEROL
  12. AMARYL [Concomitant]
     Active Substance: GLIMEPIRIDE
  13. JANUVIA [Concomitant]
     Active Substance: SITAGLIPTIN PHOSPHATE
  14. ALENDRONATE SODIUM TABLETS, USP [Suspect]
     Active Substance: ALENDRONATE SODIUM
     Indication: FRACTURE
     Route: 048
     Dates: start: 19980502, end: 20170105
  15. ASPRIN [Concomitant]
     Active Substance: ASPIRIN

REACTIONS (4)
  - Tooth extraction [None]
  - Gingival disorder [None]
  - Exostosis [None]
  - Jaw disorder [None]

NARRATIVE: CASE EVENT DATE: 20170120
